FAERS Safety Report 7339731-2 (Version None)
Quarter: 2011Q1

REPORT INFORMATION
  Report Type: 
  Country: None (occurrence: None)
  Receive Date: 20110303
  Receipt Date: 20110303
  Transmission Date: 20110831
  Serious: No
  Sender: FDA-Public Use
  Company Number: None

PATIENT
  Sex: Female
  Weight: 65.5 kg

DRUGS (1)
  1. TAXOL [Suspect]
     Dosage: 132.8 MG

REACTIONS (6)
  - PLATELET COUNT DECREASED [None]
  - HYPERHIDROSIS [None]
  - SARCOIDOSIS [None]
  - CHEST PAIN [None]
  - B-CELL LYMPHOMA [None]
  - NEUTROPHIL COUNT DECREASED [None]
